FAERS Safety Report 17549534 (Version 1)
Quarter: 2020Q1

REPORT INFORMATION
  Report Type: Spontaneous
  Country: US (occurrence: US)
  Receive Date: 20200317
  Receipt Date: 20200317
  Transmission Date: 20200409
  Serious: Yes (Other)
  Sender: FDA-Public Use
  Company Number: US-GLAXOSMITHKLINE-US2020AMR044690

PATIENT
  Sex: Female

DRUGS (2)
  1. BENLYSTA [Suspect]
     Active Substance: BELIMUMAB
     Dosage: 120 MG
     Route: 065
  2. BENLYSTA [Suspect]
     Active Substance: BELIMUMAB
     Dosage: 400 MG
     Route: 065

REACTIONS (2)
  - Immunodeficiency [Unknown]
  - Coccidioidomycosis [Unknown]
